FAERS Safety Report 4431857-6 (Version None)
Quarter: 2004Q3

REPORT INFORMATION
  Report Type: 
  Country: None (occurrence: None)
  Receive Date: 20040819
  Receipt Date: 20040804
  Transmission Date: 20050211
  Serious: Yes (Hospitalization)
  Sender: FDA-Public Use
  Company Number: 04P-047-0268736-00

PATIENT
  Age: 2 Year
  Sex: Male

DRUGS (3)
  1. BIAXIN [Suspect]
     Indication: PHARYNGITIS
     Dosage: 4 ML, 1 IN 12 HR, PER ORAL
     Route: 048
     Dates: start: 20040724, end: 20040724
  2. DICLOFENAC SODIUM [Suspect]
     Indication: PYREXIA
     Dosage: 5 DROP, ONCE, PER ORAL
     Route: 048
     Dates: start: 20040724, end: 20040724
  3. VOLTAREN [Suspect]
     Indication: PYREXIA
     Dosage: 25 MG, ONCE RECTAL
     Route: 054
     Dates: start: 20040725, end: 20040725

REACTIONS (3)
  - OEDEMA PERIPHERAL [None]
  - RASH GENERALISED [None]
  - SWELLING FACE [None]
